FAERS Safety Report 5990706-5 (Version None)
Quarter: 2008Q4

REPORT INFORMATION
  Report Type: 
  Country: None (occurrence: None)
  Receive Date: 20081211
  Receipt Date: 20081203
  Transmission Date: 20090506
  Serious: Yes (Disabling)
  Sender: FDA-Public Use
  Company Number: PHHY2008JP26525

PATIENT
  Age: 59 Year
  Sex: Female

DRUGS (3)
  1. GLEEVEC [Suspect]
     Indication: ACUTE LYMPHOCYTIC LEUKAEMIA
     Dosage: UNK
     Route: 048
     Dates: start: 20080501
  2. CYTARABINE [Concomitant]
     Dosage: UNK
     Dates: start: 20080501
  3. METHOTREXATE [Concomitant]
     Dosage: UNK
     Dates: start: 20080501

REACTIONS (1)
  - MONOPLEGIA [None]
